FAERS Safety Report 14621883 (Version 1)
Quarter: 2018Q1

REPORT INFORMATION
  Report Type: Report from Study
  Country: ZA (occurrence: ZA)
  Receive Date: 20180310
  Receipt Date: 20180310
  Transmission Date: 20180509
  Serious: Yes (Death, Hospitalization, Other)
  Sender: FDA-Public Use
  Company Number: ZA-AMGEN-ZAFSL2018032316

PATIENT
  Sex: Female

DRUGS (1)
  1. ARANESP [Suspect]
     Active Substance: DARBEPOETIN ALFA
     Indication: CHRONIC KIDNEY DISEASE
     Dosage: 30 MG, QWK
     Route: 042
     Dates: start: 201508, end: 20180307

REACTIONS (3)
  - Constipation [Unknown]
  - Intestinal perforation [Fatal]
  - Sepsis [Fatal]

NARRATIVE: CASE EVENT DATE: 201803
